FAERS Safety Report 5002579-8 (Version None)
Quarter: 2006Q2

REPORT INFORMATION
  Report Type: 
  Country: None (occurrence: None)
  Receive Date: 20060510
  Receipt Date: 20060428
  Transmission Date: 20061013
  Serious: Yes (Other)
  Sender: FDA-Public Use
  Company Number: HQWYE038428APR06

PATIENT
  Age: 39 Year
  Sex: Female

DRUGS (6)
  1. PANTOPRAZOLE SODIUM [Suspect]
     Dosage: 20  MG 1X PER 1 DAY ORAL
     Route: 048
     Dates: start: 20060107, end: 20060215
  2. LECICARBON (LECITHIN/SODIUM BICARBONATE/SODIUM PHOSPHATE MONOBASIC) [Suspect]
     Dosage: 1 DOSAGE FORM 1X PER 1 DAY RECTAL
     Route: 054
     Dates: start: 20060327, end: 20060330
  3. MAGALDRATE (MAGALDRATE) [Suspect]
     Dosage: 800 MG 1X PER 1 DAY ORAL
     Route: 048
  4. MOVICOL (MACROGOL/POTASSIUM CHLORIDE/SODIM BICARBONATE/SODIUM CHLORIDE [Suspect]
     Dosage: 1 DOSAGE FORM 1X PER 1 DAY ORAL
     Route: 048
     Dates: start: 20060312, end: 20060318
  5. NEO CITRAN (ASCORBIC ACID/PARACETAMOL/PHENIRAMINE MALEATE/PHENYLEPHRIN [Suspect]
     Dosage: 1 DOSAGE FORM 1X PER 1 DAY ORAL
     Route: 048
     Dates: start: 20060404, end: 20060404
  6. TRANSIPEG (MACROGOL) [Suspect]
     Dosage: 1 DOSAGE FORM 2X PER 1 DAY ORAL
     Route: 048
     Dates: start: 20060327, end: 20060330

REACTIONS (1)
  - DRUG EXPOSURE DURING PREGNANCY [None]
